FAERS Safety Report 6896296-7 (Version None)
Quarter: 2010Q3

REPORT INFORMATION
  Report Type: 
  Country: None (occurrence: None)
  Receive Date: 20100802
  Receipt Date: 20100727
  Transmission Date: 20110219
  Serious: Yes (Hospitalization)
  Sender: FDA-Public Use
  Company Number: B0667753A

PATIENT
  Sex: Female
  Weight: 52 kg

DRUGS (13)
  1. ALKERAN [Suspect]
     Indication: STEM CELL TRANSPLANT
     Dosage: 90MG PER DAY
     Route: 042
     Dates: start: 20060620, end: 20060621
  2. FLUDARA [Suspect]
     Indication: STEM CELL TRANSPLANT
     Dosage: 25MG PER DAY
     Route: 042
     Dates: start: 20060617, end: 20060621
  3. METHOTREXATE [Suspect]
     Indication: IMMUNOSUPPRESSION
     Dosage: 15MG PER DAY
     Route: 065
     Dates: start: 20060624, end: 20060624
  4. METHOTREXATE [Suspect]
     Dosage: 10MG PER DAY
     Route: 065
     Dates: start: 20060626, end: 20060626
  5. METHOTREXATE [Suspect]
     Dosage: 10MG PER DAY
     Route: 065
     Dates: start: 20060629, end: 20060629
  6. GRAN [Concomitant]
     Dates: start: 20060624, end: 20060707
  7. TACROLIMUS [Concomitant]
     Indication: IMMUNOSUPPRESSION
     Dosage: 1MG PER DAY
     Dates: start: 20060622
  8. COTRIM [Concomitant]
     Dosage: 4IUAX PER DAY
     Route: 048
     Dates: start: 20060613, end: 20060621
  9. CIPROFLOXACIN HCL [Concomitant]
     Dosage: 600MG PER DAY
     Route: 048
     Dates: start: 20060616, end: 20060710
  10. DIFLUCAN [Concomitant]
     Dosage: 200MG PER DAY
     Route: 048
     Dates: start: 20060616, end: 20060710
  11. UNKNOWN DRUG [Concomitant]
     Dosage: 1.25G PER DAY
     Route: 048
     Dates: start: 20060618, end: 20060724
  12. TAKEPRON [Concomitant]
     Dosage: 15MG PER DAY
     Route: 048
     Dates: start: 20060616
  13. SOLU-MEDROL [Concomitant]
     Dosage: 80MG PER DAY
     Route: 042
     Dates: start: 20060708, end: 20060721

REACTIONS (4)
  - CYTOMEGALOVIRUS INFECTION [None]
  - FEBRILE NEUTROPENIA [None]
  - IMMUNOLOGY TEST ABNORMAL [None]
  - LIVER DISORDER [None]
